FAERS Safety Report 5388873-X (Version None)
Quarter: 2007Q3

REPORT INFORMATION
  Report Type: 
  Country: None (occurrence: None)
  Receive Date: 20070713
  Receipt Date: 20070617
  Transmission Date: 20080115
  Serious: Yes (Hospitalization)
  Sender: FDA-Public Use
  Company Number: 010052335A

PATIENT
  Sex: Female

DRUGS (1)
  1. COLGATE TOTAL [Suspect]
     Indication: GINGIVITIS
     Dosage: ORAL
     Route: 048

REACTIONS (4)
  - ABDOMINAL PAIN UPPER [None]
  - GENERAL SYMPTOM [None]
  - MALAISE [None]
  - UNEVALUABLE EVENT [None]
